FAERS Safety Report 7833009-6 (Version None)
Quarter: 2011Q4

REPORT INFORMATION
  Report Type: 
  Country: None (occurrence: None)
  Receive Date: 20111024
  Receipt Date: 20111013
  Transmission Date: 20120403
  Serious: Yes (Hospitalization)
  Sender: FDA-Public Use
  Company Number: US-JNJFOC-20111007762

PATIENT
  Sex: Female
  Weight: 90.72 kg

DRUGS (6)
  1. DURAGESIC-100 [Suspect]
     Route: 062
     Dates: start: 20110901
  2. DURAGESIC-100 [Suspect]
     Route: 062
     Dates: start: 20090101
  3. DURAGESIC-100 [Suspect]
     Route: 062
     Dates: start: 20110901, end: 20110901
  4. DURAGESIC-100 [Suspect]
     Route: 062
     Dates: start: 20090101, end: 20110901
  5. DURAGESIC-100 [Suspect]
     Indication: PAIN
     Route: 062
     Dates: start: 20050101, end: 20050101
  6. DURAGESIC-100 [Suspect]
     Route: 062
     Dates: start: 20050101, end: 20090101

REACTIONS (5)
  - HOT FLUSH [None]
  - UTERINE LEIOMYOMA [None]
  - INCORRECT DRUG ADMINISTRATION DURATION [None]
  - PRODUCT QUALITY ISSUE [None]
  - INADEQUATE ANALGESIA [None]
